FAERS Safety Report 21185079 (Version 1)
Quarter: 2022Q3

REPORT INFORMATION
  Report Type: Spontaneous
  Country: US (occurrence: None)
  Receive Date: 20220807
  Receipt Date: 20220807
  Transmission Date: 20221027
  Serious: Yes (Other)
  Sender: FDA-Public Use
  Company Number: None

PATIENT
  Age: 62 Year
  Sex: Male
  Weight: 96.75 kg

DRUGS (10)
  1. LEVOFLOXACIN [Suspect]
     Active Substance: LEVOFLOXACIN
     Indication: Urinary tract infection
     Dosage: FREQUENCY : DAILY;?
     Route: 048
     Dates: start: 20220728, end: 20220803
  2. TOPIRAMATE [Concomitant]
     Active Substance: TOPIRAMATE
  3. NORTRIPTYLINE [Concomitant]
     Active Substance: NORTRIPTYLINE
  4. RIBOFLAVIN [Concomitant]
     Active Substance: RIBOFLAVIN
  5. VITAMIN B2 [Concomitant]
     Active Substance: RIBOFLAVIN
  6. MAGNESIUM OXIDE [Concomitant]
     Active Substance: MAGNESIUM OXIDE
  7. PSYLLIUM [Concomitant]
     Active Substance: PLANTAGO SEED
  8. HERBALS\TURMERIC [Concomitant]
     Active Substance: HERBALS\TURMERIC
  9. VITAMINS [Concomitant]
     Active Substance: VITAMINS
  10. COENZYME Q-10 [Concomitant]

REACTIONS (9)
  - Injury [None]
  - Contusion [None]
  - Pruritus [None]
  - Ligament sprain [None]
  - Paraesthesia [None]
  - Disturbance in attention [None]
  - Feeling abnormal [None]
  - Tendon disorder [None]
  - Tendon pain [None]

NARRATIVE: CASE EVENT DATE: 20220728
